FAERS Safety Report 5669176-2 (Version None)
Quarter: 2008Q1

REPORT INFORMATION
  Report Type: 
  Country: None (occurrence: None)
  Receive Date: 20080317
  Receipt Date: 20080317
  Transmission Date: 20080703
  Serious: Yes (Hospitalization, Other)
  Sender: FDA-Public Use
  Company Number: None

PATIENT
  Sex: Male
  Weight: 108.8 kg

DRUGS (2)
  1. HEPARIN SODIUM [Suspect]
     Indication: HAEMODIALYSIS
     Dosage: 1000 ML BOLUS HEMODIALYSI
     Route: 010
     Dates: start: 20070401, end: 20080313
  2. HEPARIN SODIUM [Suspect]

REACTIONS (12)
  - ABDOMINAL PAIN [None]
  - BURNING SENSATION [None]
  - CHEST PAIN [None]
  - CONDITION AGGRAVATED [None]
  - DYSPNOEA [None]
  - FEELING ABNORMAL [None]
  - IMPAIRED WORK ABILITY [None]
  - INSOMNIA [None]
  - NAUSEA [None]
  - NEUROPATHY PERIPHERAL [None]
  - PHARMACEUTICAL PRODUCT COMPLAINT [None]
  - STOMACH DISCOMFORT [None]
